FAERS Safety Report 21396182 (Version 1)
Quarter: 2022Q3

REPORT INFORMATION
  Report Type: Spontaneous
  Country: IE (occurrence: IE)
  Receive Date: 20220930
  Receipt Date: 20220930
  Transmission Date: 20221027
  Serious: Yes (Hospitalization, Other)
  Sender: FDA-Public Use
  Company Number: None

PATIENT
  Sex: Female

DRUGS (5)
  1. MORPHINE SULFATE [Suspect]
     Active Substance: MORPHINE SULFATE
     Indication: Pain
     Route: 048
  2. ALFENTANIL [Concomitant]
     Active Substance: ALFENTANIL
     Indication: Pain
     Route: 058
  3. ALFENTANIL [Concomitant]
     Active Substance: ALFENTANIL
     Route: 058
  4. OXYCODONE [Concomitant]
     Active Substance: OXYCODONE
     Indication: Pain
     Route: 058
  5. OXYCODONE [Concomitant]
     Active Substance: OXYCODONE
     Route: 058

REACTIONS (1)
  - Toxicity to various agents [Unknown]
